FAERS Safety Report 6472173-0 (Version None)
Quarter: 2009Q4

REPORT INFORMATION
  Report Type: 
  Country: None (occurrence: None)
  Receive Date: 20091119
  Receipt Date: 20090930
  Transmission Date: 20100525
  Serious: No
  Sender: FDA-Public Use
  Company Number: WAES0910USA00069

PATIENT
  Age: 57 Year
  Sex: Male

DRUGS (2)
  1. JANUVIA [Suspect]
     Indication: TYPE 2 DIABETES MELLITUS
     Dosage: 100 MG/DAILY/PO
     Route: 048
     Dates: start: 20060901, end: 20081201
  2. METFORMIN HCL [Suspect]
     Dates: start: 20081201, end: 20080101

REACTIONS (6)
  - BRONCHITIS BACTERIAL [None]
  - DIZZINESS [None]
  - FATIGUE [None]
  - HYPERHIDROSIS [None]
  - HYPOVENTILATION [None]
  - WEIGHT INCREASED [None]
